FAERS Safety Report 14918125 (Version 1)
Quarter: 2018Q2

REPORT INFORMATION
  Report Type: Spontaneous
  Country: US (occurrence: US)
  Receive Date: 20180502
  Receipt Date: 20180502
  Transmission Date: 20180711
  Serious: Yes (Other)
  Sender: FDA-Public Use
  Company Number: None

PATIENT
  Age: 3 Year
  Sex: Male
  Weight: 15.75 kg

DRUGS (2)
  1. SMARTY PANTS KIDS COMPLETE GUMMY [Concomitant]
  2. CLEARLAX [Suspect]
     Active Substance: POLYETHYLENE GLYCOL 3350
     Indication: CONSTIPATION
     Dosage: 0.5 CAPFUL; DAILY, ORAL?
     Route: 048
     Dates: start: 20170801, end: 20180430

REACTIONS (8)
  - Irritability [None]
  - Human bite [None]
  - Excessive eye blinking [None]
  - Anger [None]
  - Disturbance in attention [None]
  - Aggression [None]
  - Defiant behaviour [None]
  - Abnormal behaviour [None]
